FAERS Safety Report 10650509 (Version 1)
Quarter: 2014Q4

REPORT INFORMATION
  Report Type: Spontaneous
  Country: US (occurrence: US)
  Receive Date: 20141214
  Receipt Date: 20141214
  Transmission Date: 20150529
  Serious: No
  Sender: FDA-Public Use
  Company Number: US-BAUSCH-SYM-2014-22986

PATIENT
  Sex: Female

DRUGS (1)
  1. XENAZINE [Suspect]
     Active Substance: TETRABENAZINE
     Indication: TIC
     Dosage: 12.5 MG UP TO 5 TIMES DAILY  (AVERAGE DOSE IS 4 TABLETS PER DAY WITH RANGE OF 3 TO 5 TABLETS PER DAY
     Route: 048
     Dates: start: 20100803

REACTIONS (3)
  - Migraine [Recovering/Resolving]
  - Off label use [Recovering/Resolving]
  - Abdominal discomfort [Recovering/Resolving]

NARRATIVE: CASE EVENT DATE: 2014
